FAERS Safety Report 18002681 (Version 2)
Quarter: 2020Q3

REPORT INFORMATION
  Report Type: Spontaneous
  Country: US (occurrence: US)
  Receive Date: 20200709
  Receipt Date: 20200709
  Transmission Date: 20201103
  Serious: No
  Sender: FDA-Public Use
  Company Number: US-ASTELLAS-2019US032458

PATIENT
  Age: 80 Year
  Sex: Female

DRUGS (4)
  1. MYRBETRIQ [Suspect]
     Active Substance: MIRABEGRON
     Route: 048
  2. MYRBETRIQ [Suspect]
     Active Substance: MIRABEGRON
     Indication: HYPERTONIC BLADDER
     Route: 048
     Dates: start: 20190806
  3. MYRBETRIQ [Suspect]
     Active Substance: MIRABEGRON
     Indication: HYPERTONIC BLADDER
     Dosage: UNK UNK, UNKNOWN FREQ.
     Route: 048
  4. MYRBETRIQ [Suspect]
     Active Substance: MIRABEGRON
     Route: 048

REACTIONS (3)
  - Diarrhoea [Recovered/Resolved]
  - Product label issue [Unknown]
  - Intentional product use issue [Unknown]

NARRATIVE: CASE EVENT DATE: 201908
